FAERS Safety Report 6996480-8 (Version None)
Quarter: 2010Q3

REPORT INFORMATION
  Report Type: 
  Country: None (occurrence: None)
  Receive Date: 20100918
  Receipt Date: 20090302
  Transmission Date: 20110219
  Serious: No
  Sender: FDA-Public Use
  Company Number: US-WYE-H08422409

PATIENT

DRUGS (2)
  1. EFFEXOR XR [Suspect]
     Route: 048
  2. EFFEXOR XR [Suspect]
     Dosage: TAPERED
     Route: 048

REACTIONS (2)
  - BONE PAIN [None]
  - DRUG WITHDRAWAL SYNDROME [None]
